FAERS Safety Report 4554389-3 (Version None)
Quarter: 2005Q1

REPORT INFORMATION
  Report Type: 
  Country: None (occurrence: None)
  Receive Date: 20050118
  Receipt Date: 20050106
  Transmission Date: 20050727
  Serious: Yes (Hospitalization)
  Sender: FDA-Public Use
  Company Number: JP-JNJFOC-20050101282

PATIENT
  Age: 57 Year
  Sex: Male

DRUGS (4)
  1. TAVANIC [Suspect]
     Indication: DRUG USE FOR UNKNOWN INDICATION
     Route: 049
     Dates: start: 20041217, end: 20041217
  2. EFFERALGAN [Concomitant]
     Route: 049
     Dates: start: 20040615, end: 20041217
  3. LEXOMIL [Concomitant]
     Route: 049
     Dates: start: 20040615, end: 20041217
  4. OMIX [Concomitant]
     Dosage: DOSE CONTROLLED / MODIFIED
     Route: 049
     Dates: start: 20041208, end: 20041217

REACTIONS (5)
  - HEPATITIS CHOLESTATIC [None]
  - HEPATOCELLULAR DAMAGE [None]
  - HYPERBILIRUBINAEMIA [None]
  - RASH MACULO-PAPULAR [None]
  - RASH VESICULAR [None]
